FAERS Safety Report 11880826 (Version 3)
Quarter: 2016Q2

REPORT INFORMATION
  Report Type: Spontaneous
  Country: FR (occurrence: FR)
  Receive Date: 20151230
  Receipt Date: 20160428
  Transmission Date: 20160815
  Serious: Yes (Hospitalization)
  Sender: FDA-Public Use
  Company Number: FR-PFIZER INC-2015466577

PATIENT
  Age: 84 Year
  Sex: Male

DRUGS (17)
  1. GUTRON [Suspect]
     Active Substance: MIDODRINE
     Dosage: UNK
     Dates: start: 20151113
  2. OXYNORM [Concomitant]
     Active Substance: OXYCODONE HYDROCHLORIDE
  3. AMLOR [Suspect]
     Active Substance: AMLODIPINE BESYLATE
     Indication: HYPERTENSION
     Dosage: UNK
     Route: 048
     Dates: start: 20151118, end: 20151228
  4. ZINFORO [Suspect]
     Active Substance: CEFTAROLINE FOSAMIL
     Indication: ARTHRITIS INFECTIVE
  5. SEROPLEX [Concomitant]
     Active Substance: ESCITALOPRAM OXALATE
     Dosage: UNK
     Dates: end: 20151227
  6. DIFFU K [Concomitant]
     Active Substance: POTASSIUM CHLORIDE
     Dosage: UNK
     Dates: end: 20151228
  7. ATARAX [Concomitant]
     Active Substance: HYDROXYZINE\HYDROXYZINE HYDROCHLORIDE
  8. MOVICOL [Concomitant]
     Active Substance: POLYETHYLENE GLYCOL 3350\POTASSIUM CHLORIDE\SODIUM BICARBONATE\SODIUM CHLORIDE
  9. RIFAMPICINE [Suspect]
     Active Substance: RIFAMPIN
     Indication: ARTHRITIS INFECTIVE
  10. CORTANCYL [Concomitant]
     Active Substance: PREDNISONE
  11. XATRAL [Concomitant]
     Active Substance: ALFUZOSIN
  12. RIFAMPICINE [Suspect]
     Active Substance: RIFAMPIN
     Indication: ENDOCARDITIS
     Dosage: 1.2 G, UNK
     Route: 042
     Dates: start: 20151117, end: 20151123
  13. DAPTOMYCINE [Concomitant]
     Active Substance: DAPTOMYCIN
     Indication: ENDOCARDITIS
     Dosage: 800 MG, DAILY
     Route: 042
     Dates: start: 20151016
  14. KARDEGIC [Concomitant]
     Active Substance: ASPIRIN LYSINE
  15. ZINFORO [Suspect]
     Active Substance: CEFTAROLINE FOSAMIL
     Indication: ENDOCARDITIS
     Dosage: 500 MG, 2X/DAY
     Route: 042
     Dates: start: 20151016, end: 20151117
  16. INEXIUM /01479302/ [Suspect]
     Active Substance: ESOMEPRAZOLE MAGNESIUM
     Dosage: UNK
     Dates: end: 20151228
  17. LANTUS [Concomitant]
     Active Substance: INSULIN GLARGINE

REACTIONS (1)
  - Agranulocytosis [Unknown]

NARRATIVE: CASE EVENT DATE: 20151120
